FAERS Safety Report 10476958 (Version 2)
Quarter: 2016Q2

REPORT INFORMATION
  Report Type: Report from Study
  Country: US (occurrence: US)
  Receive Date: 20140926
  Receipt Date: 20160610
  Transmission Date: 20160815
  Serious: Yes (Other)
  Sender: FDA-Public Use
  Company Number: US-ROCHE-1466496

PATIENT
  Sex: Male
  Weight: 18.77 kg

DRUGS (2)
  1. NUTROPIN AQ [Suspect]
     Active Substance: SOMATROPIN
     Indication: SILVER-RUSSELL SYNDROME
     Route: 058
  2. NUTROPIN AQ [Suspect]
     Active Substance: SOMATROPIN
     Route: 058

REACTIONS (6)
  - Drug dose omission [Unknown]
  - Pectus carinatum [Unknown]
  - Snoring [Unknown]
  - Arthralgia [Unknown]
  - Growth retardation [Unknown]
  - Limb asymmetry [Unknown]
